FAERS Safety Report 15655433 (Version 1)
Quarter: 2018Q4

REPORT INFORMATION
  Report Type: Spontaneous
  Country: US (occurrence: US)
  Receive Date: 20181126
  Receipt Date: 20181126
  Transmission Date: 20190205
  Serious: No
  Sender: FDA-Public Use
  Company Number: US-HORIZON-DUE-0222-2018

PATIENT
  Age: 68 Year
  Sex: Male

DRUGS (2)
  1. DUEXIS [Suspect]
     Active Substance: FAMOTIDINE\IBUPROFEN
     Indication: PAIN
     Dosage: 1 PILL
  2. CORTISONE [Concomitant]
     Active Substance: CORTISONE\HYDROCORTISONE
     Dosage: CORTISONE SHOT
     Route: 011

REACTIONS (4)
  - Nausea [Recovering/Resolving]
  - Abdominal discomfort [Recovering/Resolving]
  - Insomnia [Recovering/Resolving]
  - Gastrooesophageal reflux disease [Recovering/Resolving]

NARRATIVE: CASE EVENT DATE: 20180606
